FAERS Safety Report 23243123 (Version 2)
Quarter: 2023Q4

REPORT INFORMATION
  Report Type: Report from Study
  Country: US (occurrence: US)
  Receive Date: 20231130
  Receipt Date: 20231215
  Transmission Date: 20240110
  Serious: Yes (Hospitalization, Other)
  Sender: FDA-Public Use
  Company Number: US-ALXN-A202300684AA

PATIENT
  Sex: Male

DRUGS (2)
  1. ULTOMIRIS [Suspect]
     Active Substance: RAVULIZUMAB-CWVZ
     Indication: Myasthenia gravis
     Dosage: UNK, EVERY 8 WEEKS
     Route: 065
  2. SOLIRIS [Suspect]
     Active Substance: ECULIZUMAB
     Indication: Myasthenia gravis
     Dosage: UNK
     Route: 065

REACTIONS (18)
  - Cellulitis [Unknown]
  - Device related infection [Not Recovered/Not Resolved]
  - Neuropathy peripheral [Unknown]
  - Fall [Unknown]
  - Bacterial infection [Unknown]
  - Viral infection [Unknown]
  - Peripheral swelling [Unknown]
  - Gait disturbance [Unknown]
  - Emotional distress [Unknown]
  - Arthropathy [Unknown]
  - Joint swelling [Unknown]
  - Therapeutic response shortened [Unknown]
  - Limb discomfort [Not Recovered/Not Resolved]
  - Pain [Not Recovered/Not Resolved]
  - Dyspnoea [Unknown]
  - Dizziness [Unknown]
  - Fatigue [Unknown]
  - Asthenia [Unknown]

NARRATIVE: CASE EVENT DATE: 20230109
